FAERS Safety Report 15943771 (Version 1)
Quarter: 2019Q1

REPORT INFORMATION
  Report Type: Spontaneous
  Country: US (occurrence: US)
  Receive Date: 20190118
  Receipt Date: 20190118
  Transmission Date: 20190417
  Serious: Yes (Hospitalization)
  Sender: FDA-Public Use
  Company Number: None

PATIENT
  Age: 76 Year
  Sex: Male
  Weight: 71.21 kg

DRUGS (11)
  1. UNISOM SLEEPTABS [Concomitant]
     Active Substance: DOXYLAMINE SUCCINATE
  2. CAPECITABINE 150 MG [Suspect]
     Active Substance: CAPECITABINE
     Route: 048
     Dates: start: 20181130
  3. POTASSIUM [Concomitant]
     Active Substance: POTASSIUM
  4. LEVAQUIN [Concomitant]
     Active Substance: LEVOFLOXACIN
  5. LUPRON [Concomitant]
     Active Substance: LEUPROLIDE ACETATE
  6. OXYCODONE [Concomitant]
     Active Substance: OXYCODONE
  7. PREDNISONE. [Concomitant]
     Active Substance: PREDNISONE
  8. METATONIN [Concomitant]
  9. ACETAMINOPHEN. [Concomitant]
     Active Substance: ACETAMINOPHEN
  10. CAPECITABINE TAB 500 MG [Suspect]
     Active Substance: CAPECITABINE
     Indication: RECTAL CANCER
     Route: 048
     Dates: start: 20181130
  11. METOPROLOL. [Concomitant]
     Active Substance: METOPROLOL

REACTIONS (2)
  - Hospitalisation [None]
  - Therapy cessation [None]
